FAERS Safety Report 5067920-9 (Version None)
Quarter: 2006Q3

REPORT INFORMATION
  Report Type: 
  Country: None (occurrence: None)
  Receive Date: 20060728
  Receipt Date: 20060710
  Transmission Date: 20061208
  Serious: Yes (Hospitalization)
  Sender: FDA-Public Use
  Company Number: CA200607001520

PATIENT
  Age: 59 Year
  Sex: Female
  Weight: 53.5 kg

DRUGS (9)
  1. UNBLINDED TADALAFIL [Suspect]
     Indication: PULMONARY HYPERTENSION
     Dates: start: 20060621
  2. BOSENTAN [Concomitant]
  3. FUROSEMIDE [Concomitant]
  4. SPIRONOLACTONE [Concomitant]
  5. WARFARIN SODIUM [Concomitant]
  6. HYDROCHLOROTHIAZIDE [Concomitant]
  7. TYLENOL /USA/(PARACETAMOL) [Concomitant]
  8. OXYGEN [Concomitant]
  9. METOLAZONE [Concomitant]

REACTIONS (1)
  - OEDEMA PERIPHERAL [None]
